FAERS Safety Report 8247782 (Version 3)
Quarter: 2013Q4

REPORT INFORMATION
  Report Type: Spontaneous
  Country: CA (occurrence: CA)
  Receive Date: 20111116
  Receipt Date: 20131014
  Transmission Date: 20140711
  Serious: Yes (Hospitalization)
  Sender: FDA-Public Use
  Company Number: CA-ROCHE-1012545

PATIENT
  Age: 14 Year
  Sex: Female

DRUGS (5)
  1. XOLAIR [Suspect]
     Indication: ASTHMA
     Route: 058
     Dates: start: 20091217
  2. SYMBICORT [Concomitant]
  3. PULMICORT [Concomitant]
  4. VENTOLINE [Concomitant]
  5. PREDNISONE [Concomitant]

REACTIONS (2)
  - Pneumonia [Unknown]
  - Asthma [Unknown]
